FAERS Safety Report 7738382-5 (Version None)
Quarter: 2011Q3

REPORT INFORMATION
  Report Type: 
  Country: None (occurrence: None)
  Receive Date: 20110908
  Receipt Date: 20110830
  Transmission Date: 20111222
  Serious: Yes (Hospitalization)
  Sender: FDA-Public Use
  Company Number: JP-ASTRAZENECA-2011SE33906

PATIENT
  Age: 39 Year
  Sex: Female
  Weight: 45 kg

DRUGS (6)
  1. BETAMETHASONE [Concomitant]
     Indication: SYSTEMIC LUPUS ERYTHEMATOSUS
     Route: 048
     Dates: start: 20110513, end: 20110607
  2. FAMOTIDINE [Concomitant]
     Indication: GASTRIC ULCER
     Route: 048
     Dates: start: 20110516, end: 20110603
  3. NEORAL [Concomitant]
     Indication: SYSTEMIC LUPUS ERYTHEMATOSUS
     Route: 048
     Dates: start: 20110520, end: 20110522
  4. ALENDRONATE SODIUM [Concomitant]
     Indication: OSTEOPOROSIS
     Route: 048
     Dates: start: 20110424, end: 20110520
  5. SULFAMETHOXAZOLE [Concomitant]
     Indication: PNEUMOCYSTIS JIROVECI PNEUMONIA
     Route: 048
     Dates: start: 20110415, end: 20110523
  6. FOSCAVIR [Suspect]
     Indication: CYTOMEGALOVIRUS INFECTION
     Route: 041
     Dates: start: 20110525, end: 20110531

REACTIONS (1)
  - INTERSTITIAL LUNG DISEASE [None]
